FAERS Safety Report 5614863-5 (Version None)
Quarter: 2008Q1

REPORT INFORMATION
  Report Type: 
  Country: None (occurrence: None)
  Receive Date: 20080131
  Receipt Date: 20080128
  Transmission Date: 20080703
  Serious: Yes (Other)
  Sender: FDA-Public Use
  Company Number: 2007-05761

PATIENT
  Age: 44 Year
  Sex: Female

DRUGS (2)
  1. FERRLECIT [Suspect]
     Indication: IRON DEFICIENCY
     Dosage: INTRAVENOUS
     Route: 042
     Dates: start: 20070626, end: 20070905
  2. CLARITHROMYCIN [Suspect]
     Indication: BRONCHITIS
     Dosage: ORAL
     Route: 048
     Dates: start: 20070907, end: 20070914

REACTIONS (2)
  - HEPATOTOXICITY [None]
  - LIVER INJURY [None]
